FAERS Safety Report 7984926-8 (Version None)
Quarter: 2011Q4

REPORT INFORMATION
  Report Type: 
  Country: None (occurrence: None)
  Receive Date: 20111216
  Receipt Date: 20111018
  Transmission Date: 20120403
  Serious: No
  Sender: FDA-Public Use
  Company Number: US-ALLERGAN-1113808US

PATIENT
  Age: 58 Year
  Sex: Female

DRUGS (4)
  1. FRESH KOTE [Concomitant]
     Indication: DRY EYE
     Dosage: UNK
     Route: 047
  2. LATISSE [Suspect]
     Indication: GROWTH OF EYELASHES
     Dosage: 1 GTT, UNK
     Dates: start: 20110701, end: 20111001
  3. THERA TEARS [Concomitant]
     Indication: DRY EYE
     Dosage: UNK
     Route: 047
  4. RESTASIS [Concomitant]
     Indication: DRY EYE
     Dosage: UNK
     Route: 047

REACTIONS (2)
  - SKIN DISCOLOURATION [None]
  - INAPPROPRIATE SCHEDULE OF DRUG ADMINISTRATION [None]
